FAERS Safety Report 6521499-0 (Version None)
Quarter: 2009Q4

REPORT INFORMATION
  Report Type: 
  Country: None (occurrence: None)
  Receive Date: 20091230
  Receipt Date: 20091221
  Transmission Date: 20100525
  Serious: No
  Sender: FDA-Public Use
  Company Number: US-BAYER-200916425BCC

PATIENT
  Age: 51 Year
  Sex: Female
  Weight: 118 kg

DRUGS (1)
  1. ALKA SELTZER [Suspect]
     Indication: DRUG USE FOR UNKNOWN INDICATION
     Route: 048

REACTIONS (1)
  - NO ADVERSE EVENT [None]
